FAERS Safety Report 24726301 (Version 1)
Quarter: 2024Q4

REPORT INFORMATION
  Report Type: Spontaneous
  Country: US (occurrence: US)
  Receive Date: 20241212
  Receipt Date: 20241212
  Transmission Date: 20250115
  Serious: Yes (Other)
  Sender: SANDOZ
  Company Number: US-002147023-NVSC2024US235158

PATIENT
  Age: 89 Year
  Sex: Male

DRUGS (6)
  1. ATROPINE [Suspect]
     Active Substance: ATROPINE
     Indication: Hypotony of eye
     Dosage: 0.5 DAY
     Route: 050
  2. ATROPINE [Suspect]
     Active Substance: ATROPINE
     Indication: Choroidal detachment
  3. DIFLUPREDNATE [Suspect]
     Active Substance: DIFLUPREDNATE
     Indication: Hypotony of eye
     Dosage: UNK UNK, Q2H
     Route: 061
  4. DIFLUPREDNATE [Suspect]
     Active Substance: DIFLUPREDNATE
     Indication: Choroidal detachment
  5. TRIAMCINOLONE [Suspect]
     Active Substance: TRIAMCINOLONE
     Indication: Hypotony of eye
     Dosage: 2 DF TWO SUBTENON TRIAMCINOLONE INJECTIONS (40 MG/1.0 ML)
     Route: 047
  6. TRIAMCINOLONE [Suspect]
     Active Substance: TRIAMCINOLONE
     Indication: Choroidal detachment

REACTIONS (1)
  - Drug ineffective for unapproved indication [Unknown]
